FAERS Safety Report 19078979 (Version 1)
Quarter: 2021Q1

REPORT INFORMATION
  Report Type: Spontaneous
  Country: FR (occurrence: FR)
  Receive Date: 20210331
  Receipt Date: 20210331
  Transmission Date: 20210420
  Serious: Yes (Hospitalization)
  Sender: FDA-Public Use
  Company Number: NVSC2021FR066726

PATIENT
  Age: 51 Year
  Sex: Female
  Weight: 58 kg

DRUGS (4)
  1. PREDNISONE. [Suspect]
     Active Substance: PREDNISONE
     Indication: GRANULOMATOSIS WITH POLYANGIITIS
     Dosage: 20 MG, QD
     Route: 048
  2. ORENCIA [Suspect]
     Active Substance: ABATACEPT
     Indication: GRANULOMATOSIS WITH POLYANGIITIS
     Dosage: 750 MG, 4W (POUDRE POUR SOLUTION A DILUER POUR PERFUSION)
     Route: 042
     Dates: start: 20180418, end: 202102
  3. DEXAFREE [Suspect]
     Active Substance: DEXAMETHASONE SODIUM PHOSPHATE
     Indication: PRODUCT USED FOR UNKNOWN INDICATION
     Dosage: UNK
     Route: 047
  4. IMUREL [Suspect]
     Active Substance: AZATHIOPRINE SODIUM
     Indication: GRANULOMATOSIS WITH POLYANGIITIS
     Dosage: 100 MG, QD
     Route: 048
     Dates: end: 20210302

REACTIONS (1)
  - Brain abscess [Recovering/Resolving]

NARRATIVE: CASE EVENT DATE: 20210205
